FAERS Safety Report 17197070 (Version 1)
Quarter: 2019Q4

REPORT INFORMATION
  Report Type: Spontaneous
  Country: US (occurrence: US)
  Receive Date: 20191224
  Receipt Date: 20191224
  Transmission Date: 20200122
  Serious: No
  Sender: FDA-Public Use
  Company Number: US-SA-2019SA357353

PATIENT
  Age: 65 Year
  Sex: Female

DRUGS (7)
  1. EUCRISA [Concomitant]
     Active Substance: CRISABOROLE
  2. BETAMETHASONE. [Concomitant]
     Active Substance: BETAMETHASONE
  3. DUPIXENT [Suspect]
     Active Substance: DUPILUMAB
     Dosage: 300 MG, QOW
     Dates: start: 201908
  4. KETOCONAZOLE. [Concomitant]
     Active Substance: KETOCONAZOLE
  5. HYDROXYZINE [Concomitant]
     Active Substance: HYDROXYZINE HYDROCHLORIDE
  6. DUPIXENT [Suspect]
     Active Substance: DUPILUMAB
     Indication: EPIDERMOLYSIS BULLOSA
     Dosage: UNK
     Dates: start: 20190201, end: 20190201
  7. DUPIXENT [Suspect]
     Active Substance: DUPILUMAB
     Dosage: 300 MG, QOW

REACTIONS (4)
  - Off label use [Unknown]
  - Arthralgia [Unknown]
  - Diarrhoea [Unknown]
  - Influenza [Unknown]

NARRATIVE: CASE EVENT DATE: 20190201
